FAERS Safety Report 6213729-X (Version None)
Quarter: 2009Q2

REPORT INFORMATION
  Report Type: 
  Country: None (occurrence: None)
  Receive Date: 20090603
  Receipt Date: 20090525
  Transmission Date: 20091009
  Serious: Yes (Hospitalization, Other)
  Sender: FDA-Public Use
  Company Number: AU-ABBOTT-09P-008-0572784-00

PATIENT
  Age: 42 Year
  Sex: Female

DRUGS (4)
  1. LUCRIN INJECTION [Suspect]
     Indication: IN VITRO FERTILISATION
  2. GONAL-F [Concomitant]
     Indication: IN VITRO FERTILISATION
  3. SAIZEN [Concomitant]
     Indication: IN VITRO FERTILISATION
  4. PREGNYL [Concomitant]
     Indication: IN VITRO FERTILISATION

REACTIONS (2)
  - EMPYEMA [None]
  - PNEUMONIA [None]
